FAERS Safety Report 8847980 (Version 1)
Quarter: 2012Q4

REPORT INFORMATION
  Report Type: 
  Country: US (occurrence: US)
  Receive Date: 20121018
  Receipt Date: 20121018
  Transmission Date: 20130627
  Serious: Yes (Other)
  Sender: FDA-Public Use
  Company Number: US-ROCHE-1142213

PATIENT
  Sex: Female
  Weight: 56.75 kg

DRUGS (12)
  1. NUTROPIN AQ [Suspect]
     Indication: GROWTH HORMONE DEFICIENCY
     Dosage: 0.006 mg/kg or 0.07 cc
     Route: 058
     Dates: start: 19990408
  2. NUTROPIN AQ [Suspect]
     Dosage: 0.12 cc
     Route: 058
  3. NUTROPIN AQ [Suspect]
     Dosage: 0.13 cc
     Route: 058
  4. NUTROPIN AQ [Suspect]
     Dosage: 0.08 cc
     Route: 058
  5. NUTROPIN AQ [Suspect]
     Dosage: 0.15 cc
     Route: 058
  6. BUMEX [Concomitant]
     Route: 048
  7. SPIRONOLACTONE [Concomitant]
     Route: 048
  8. SYNTHROID [Concomitant]
     Route: 048
  9. LEVOTHROID [Concomitant]
     Route: 048
  10. GENOTROPIN [Concomitant]
  11. CLARITIN [Concomitant]
  12. MICRO K EXTENCAPS [Concomitant]

REACTIONS (7)
  - Pneumonia [Unknown]
  - Fluid retention [Unknown]
  - Influenza [Unknown]
  - Pelvic pain [Unknown]
  - Fatigue [Unknown]
  - Breast pain [Unknown]
  - Breast tenderness [Unknown]
